FAERS Safety Report 19059556 (Version 2)
Quarter: 2021Q2

REPORT INFORMATION
  Report Type: Spontaneous
  Country: GB (occurrence: GB)
  Receive Date: 20210326
  Receipt Date: 20210416
  Transmission Date: 20210717
  Serious: Yes (Other)
  Sender: FDA-Public Use
  Company Number: GB-ADVANZ PHARMA-202103002153

PATIENT

DRUGS (8)
  1. TRAMETINIB [Concomitant]
     Active Substance: TRAMETINIB
     Indication: HISTIOCYTIC SARCOMA
     Dosage: 2 MG, QD (2 MG ONCE DAILY, 3 CYCLES MOST RECENTLY RECEIVED)
     Dates: start: 202010
  2. IFOSFAMIDE. [Suspect]
     Active Substance: IFOSFAMIDE
     Indication: HISTIOCYTIC SARCOMA
     Dosage: ICE REGIMEN
     Route: 065
     Dates: start: 202008, end: 202009
  3. VINCRISTINE [Suspect]
     Active Substance: VINCRISTINE
     Indication: HISTIOCYTIC SARCOMA
     Dosage: UNK (6 CYCLICAL (CHOP REGIMEN))
     Route: 065
     Dates: start: 202004, end: 202007
  4. PREDNISOLONE. [Suspect]
     Active Substance: PREDNISOLONE
     Indication: HISTIOCYTIC SARCOMA
     Dosage: 6 CYCLICAL (CHOP REGIMEN)
     Route: 065
     Dates: start: 202004, end: 202007
  5. DOXORUBICIN HYDROCHLORIDE. [Suspect]
     Active Substance: DOXORUBICIN HYDROCHLORIDE
     Indication: HISTIOCYTIC SARCOMA
     Dosage: UNK (6 CYCLICAL (CHOP))
     Route: 065
     Dates: start: 202004, end: 202007
  6. VEPESID [Suspect]
     Active Substance: ETOPOSIDE
     Indication: HISTIOCYTIC SARCOMA
     Dosage: ICE REGIMEN
     Route: 065
     Dates: start: 202008, end: 202009
  7. CYCLOPHOSPHAMIDE. [Suspect]
     Active Substance: CYCLOPHOSPHAMIDE
     Indication: HISTIOCYTIC SARCOMA
     Dosage: 1 G (6 CYCLICAL (CHOP REGIMEN))
     Route: 065
     Dates: start: 202004, end: 202007
  8. PARAPLATIN [Suspect]
     Active Substance: CARBOPLATIN
     Indication: HISTIOCYTIC SARCOMA
     Dosage: ICE REGIMEN
     Route: 065
     Dates: start: 202008, end: 202009

REACTIONS (9)
  - Hepatic lesion [Unknown]
  - Pancreatic mass [Unknown]
  - Abdominal mass [Unknown]
  - Pain [Unknown]
  - Therapy partial responder [Unknown]
  - Metastatic neoplasm [Unknown]
  - Lymphadenopathy [Unknown]
  - Product use in unapproved indication [Unknown]
  - Disease progression [Unknown]

NARRATIVE: CASE EVENT DATE: 2020
